FAERS Safety Report 6176400-9 (Version None)
Quarter: 2009Q2

REPORT INFORMATION
  Report Type: 
  Country: None (occurrence: None)
  Receive Date: 20090501
  Receipt Date: 20090424
  Transmission Date: 20091009
  Serious: Yes (Other)
  Sender: FDA-Public Use
  Company Number: US-JNJFOC-20090406442

PATIENT
  Sex: Male
  Weight: 91.63 kg

DRUGS (2)
  1. RISPERDAL [Suspect]
     Route: 048
  2. RISPERDAL [Suspect]
     Indication: AUTISM
     Dosage: 2 MG THREE TIMES A DAY
     Route: 048

REACTIONS (7)
  - AFFECTIVE DISORDER [None]
  - APRAXIA [None]
  - DYSPHAGIA [None]
  - EATING DISORDER SYMPTOM [None]
  - MASTICATION DISORDER [None]
  - SALIVARY HYPERSECRETION [None]
  - WEIGHT DECREASED [None]
